FAERS Safety Report 9842317 (Version 2)
Quarter: 2014Q2

REPORT INFORMATION
  Report Type: Spontaneous
  Country: SE (occurrence: SE)
  Receive Date: 20140124
  Receipt Date: 20140402
  Transmission Date: 20141212
  Serious: Yes (Other)
  Sender: FDA-Public Use
  Company Number: SE-GILEAD-2014-0092695

PATIENT
  Age: 34 Year
  Sex: Female

DRUGS (1)
  1. EVIPLERA [Suspect]
     Indication: HIV INFECTION
     Dosage: 1 DF, UNK
     Route: 065
     Dates: start: 20130310

REACTIONS (2)
  - Chills [Recovered/Resolved]
  - Neutropenia [Recovered/Resolved]
